FAERS Safety Report 18915858 (Version 1)
Quarter: 2021Q1

REPORT INFORMATION
  Report Type: Spontaneous
  Country: FR (occurrence: FR)
  Receive Date: 20210219
  Receipt Date: 20210219
  Transmission Date: 20210420
  Serious: Yes (Other)
  Sender: FDA-Public Use
  Company Number: FR-ASTRAZENECA-2021A062341

PATIENT
  Sex: Female

DRUGS (3)
  1. PULMICORT TURBUHALER [Suspect]
     Active Substance: BUDESONIDE
     Route: 055
  2. DOLIPRANE [Concomitant]
     Active Substance: ACETAMINOPHEN
  3. TOPLEXIL [Concomitant]

REACTIONS (3)
  - Suspected COVID-19 [Unknown]
  - Dyspnoea [Unknown]
  - Off label use [Unknown]
